FAERS Safety Report 18988717 (Version 1)
Quarter: 2021Q1

REPORT INFORMATION
  Report Type: Other
  Country: GB (occurrence: GB)
  Receive Date: 20210309
  Receipt Date: 20210309
  Transmission Date: 20210420
  Serious: No
  Sender: FDA-Public Use
  Company Number: GB-LUPIN PHARMACEUTICALS INC.-2021-02810

PATIENT
  Age: 68 Year
  Sex: Male
  Weight: 80 kg

DRUGS (10)
  1. COCODAMOL [Concomitant]
     Active Substance: ACETAMINOPHEN\CODEINE PHOSPHATE
     Indication: ILL-DEFINED DISORDER
     Dosage: UNK
     Route: 065
  2. LOPERAMIDE [Concomitant]
     Active Substance: LOPERAMIDE
     Indication: ILL-DEFINED DISORDER
     Dosage: UNK
     Route: 065
  3. SERTRALINE [Suspect]
     Active Substance: SERTRALINE HYDROCHLORIDE
     Indication: ANXIETY
     Dosage: 50 MILLIGRAM, UNK
     Route: 048
     Dates: start: 20210108
  4. FOSTAIR [Concomitant]
     Active Substance: BECLOMETHASONE\FORMOTEROL
     Indication: ILL-DEFINED DISORDER
     Dosage: UNK
     Route: 065
  5. AMLODIPINE [Concomitant]
     Active Substance: AMLODIPINE BESYLATE
     Indication: ILL-DEFINED DISORDER
     Dosage: UNK
     Route: 065
  6. PERINDOPRIL [Concomitant]
     Active Substance: PERINDOPRIL
     Indication: ILL-DEFINED DISORDER
     Dosage: UNK
     Route: 065
  7. THIAMINE. [Concomitant]
     Active Substance: THIAMINE
     Indication: ILL-DEFINED DISORDER
     Dosage: UNK
     Route: 065
  8. MEBEVERINE [Concomitant]
     Active Substance: MEBEVERINE
     Indication: ILL-DEFINED DISORDER
     Dosage: UNK
     Route: 065
  9. SERTRALINE [Suspect]
     Active Substance: SERTRALINE HYDROCHLORIDE
     Indication: DEPRESSION
  10. ATORVASTATIN [Concomitant]
     Active Substance: ATORVASTATIN
     Indication: ILL-DEFINED DISORDER
     Dosage: UNK
     Route: 065

REACTIONS (3)
  - Poor quality sleep [Not Recovered/Not Resolved]
  - Adverse drug reaction [Not Recovered/Not Resolved]
  - Diarrhoea [Not Recovered/Not Resolved]

NARRATIVE: CASE EVENT DATE: 20210109
